FAERS Safety Report 24438330 (Version 1)
Quarter: 2024Q4

REPORT INFORMATION
  Report Type: Other
  Country: TN (occurrence: TN)
  Receive Date: 20241015
  Receipt Date: 20241015
  Transmission Date: 20250115
  Serious: Yes (Hospitalization, Other)
  Sender: ZHEJIANG JINGXIN PHARMACEUTICAL
  Company Number: TN-Zhejiang Jingxin Pharmaceutical Co., Ltd-2163065

PATIENT
  Age: 50 Year
  Sex: Female

DRUGS (1)
  1. LEVETIRACETAM [Suspect]
     Active Substance: LEVETIRACETAM
     Indication: Seizure

REACTIONS (2)
  - Cardio-respiratory arrest [Unknown]
  - Status epilepticus [Recovered/Resolved]
